FAERS Safety Report 5286487-3 (Version None)
Quarter: 2007Q2

REPORT INFORMATION
  Report Type: 
  Country: None (occurrence: None)
  Receive Date: 20070404
  Receipt Date: 20070330
  Transmission Date: 20071010
  Serious: No
  Sender: FDA-Public Use
  Company Number: 2006UW11200

PATIENT
  Sex: Male
  Weight: 104.5 kg

DRUGS (3)
  1. SEROQUEL [Suspect]
     Indication: DEPRESSION
     Route: 048
     Dates: start: 20020511
  2. SEROQUEL [Suspect]
     Indication: SCHIZOPHRENIA
     Route: 048
     Dates: start: 20020511
  3. ZYPREXA [Concomitant]
     Dates: start: 20010620

REACTIONS (2)
  - ANXIETY [None]
  - DIABETES MELLITUS NON-INSULIN-DEPENDENT [None]
